FAERS Safety Report 10423298 (Version 2)
Quarter: 2014Q4

REPORT INFORMATION
  Report Type: Spontaneous
  Country: US (occurrence: None)
  Receive Date: 20140722
  Receipt Date: 20141020
  Transmission Date: 20150528
  Serious: No
  Sender: FDA-Public Use
  Company Number: AEGR000553

PATIENT
  Age: 52 Year
  Sex: Female

DRUGS (8)
  1. PRAVASTATIN (PRAVASTATIN SODIUM) [Concomitant]
  2. TRICOR [Concomitant]
     Active Substance: FENOFIBRATE
  3. OMEPRAZOLE (OMEPRAZOLE) [Concomitant]
     Active Substance: OMEPRAZOLE
  4. ZETIA [Concomitant]
     Active Substance: EZETIMIBE
  5. PAROXETINE HCL (PAROXETINE HYDROCHLORIDE) [Concomitant]
  6. TOPROL (METOPROLOL SUCCINATE) [Concomitant]
  7. JUXTAPID [Suspect]
     Active Substance: LOMITAPIDE MESYLATE
     Indication: TYPE IIA HYPERLIPIDAEMIA
     Route: 048
     Dates: start: 201310
  8. VISTARIL (HYDROXYZINE EMBONATE) [Concomitant]

REACTIONS (3)
  - Diarrhoea [None]
  - Inappropriate schedule of drug administration [None]
  - Alanine aminotransferase increased [None]
